FAERS Safety Report 6555472-3 (Version None)
Quarter: 2010Q1

REPORT INFORMATION
  Report Type: 
  Country: None (occurrence: None)
  Receive Date: 20100128
  Receipt Date: 20100121
  Transmission Date: 20100710
  Serious: Yes (Other)
  Sender: FDA-Public Use
  Company Number: US-PURDUE-USA-2009-0040167

PATIENT
  Sex: Male
  Weight: 140.59 kg

DRUGS (3)
  1. OXYCONTIN [Suspect]
     Indication: ANALGESIC THERAPY
     Dosage: 20 MG, TID
     Dates: start: 20000717, end: 20011012
  2. OXYCONTIN [Suspect]
     Indication: BACK PAIN
     Dosage: 20 MG, BID
     Dates: start: 20000725, end: 20010930
  3. VIOXX [Concomitant]

REACTIONS (2)
  - LIVER INJURY [None]
  - RENAL FAILURE [None]
